FAERS Safety Report 13098424 (Version 4)
Quarter: 2019Q3

REPORT INFORMATION
  Report Type: Spontaneous
  Country: JP (occurrence: JP)
  Receive Date: 20170109
  Receipt Date: 20190809
  Transmission Date: 20191004
  Serious: Yes (Hospitalization, Disabling)
  Sender: FDA-Public Use
  Company Number: JP-JNJFOC-20170104857

PATIENT
  Age: 63 Year
  Sex: Female
  Weight: 86 kg

DRUGS (22)
  1. HEPARIN SODIUM. [Concomitant]
     Active Substance: HEPARIN SODIUM
     Indication: SPINAL STENOSIS
     Route: 041
     Dates: start: 20161205, end: 20161206
  2. METGLUCO [Concomitant]
     Active Substance: METFORMIN HYDROCHLORIDE
     Indication: TYPE 2 DIABETES MELLITUS
     Dosage: STARTED BEFORE ADMINISTRATION OF CANAGLFLOZIN
     Route: 048
     Dates: end: 20161106
  3. FEBURIC [Concomitant]
     Active Substance: FEBUXOSTAT
     Indication: HYPERURICAEMIA
     Dosage: STARTED BEFORE ADMINISTRATION OF CANAGLFLOZIN
     Route: 048
     Dates: end: 20161109
  4. ALDACTONE [Concomitant]
     Active Substance: SPIRONOLACTONE
     Dosage: STARTED BEFORE ADMINISTRATION OF CANAGLFLOZIN
     Route: 048
     Dates: end: 20161129
  5. LIXIANA [Concomitant]
     Active Substance: EDOXABAN TOSYLATE
     Route: 048
     Dates: start: 20170919
  6. LASIX [Concomitant]
     Active Substance: FUROSEMIDE
     Dosage: STARTED BEFORE ADMINISTRATION OF CANAGLFLOZIN
     Route: 048
  7. ARTIST [Concomitant]
     Active Substance: CARVEDILOL
     Dosage: STARTED BEFORE ADMINISTRATION OF CANAGLFLOZIN
     Route: 048
     Dates: end: 20170914
  8. PREMINENT [Concomitant]
     Active Substance: HYDROCHLOROTHIAZIDE\LOSARTAN POTASSIUM
     Route: 048
     Dates: start: 20161214
  9. METGLUCO [Concomitant]
     Active Substance: METFORMIN HYDROCHLORIDE
     Route: 048
     Dates: start: 20180323
  10. SLOW-K [Concomitant]
     Active Substance: POTASSIUM CHLORIDE
     Route: 048
  11. LANTUS [Concomitant]
     Active Substance: INSULIN GLARGINE
     Route: 051
     Dates: start: 20161031, end: 20170118
  12. FEBURIC [Concomitant]
     Active Substance: FEBUXOSTAT
     Dosage: STARTED BEFORE ADMINISTRATION OF CANAGLFLOZIN
     Route: 048
     Dates: start: 20170406
  13. PLAVIX [Concomitant]
     Active Substance: CLOPIDOGREL BISULFATE
     Dosage: STARTED BEFORE ADMINISTRATION OF CANAGLFLOZIN
     Route: 048
     Dates: end: 20170923
  14. TAKEPRON [Concomitant]
     Active Substance: LANSOPRAZOLE
     Indication: GASTROINTESTINAL DISORDER
     Dosage: STARTED BEFORE ADMINISTRATION OF CANAGLFLOZIN
     Route: 048
  15. METGLUCO [Concomitant]
     Active Substance: METFORMIN HYDROCHLORIDE
     Route: 048
     Dates: start: 20170703, end: 20180322
  16. VICTOZA [Concomitant]
     Active Substance: LIRAGLUTIDE
     Indication: TYPE 2 DIABETES MELLITUS
     Dosage: STARTED BEFORE ADMINISTRATION OF CANAGLFLOZIN
     Route: 058
  17. ENALAPRIL MALEATE. [Concomitant]
     Active Substance: ENALAPRIL MALEATE
     Route: 048
  18. CANAGLU [Suspect]
     Active Substance: CANAGLIFLOZIN
     Indication: TYPE 2 DIABETES MELLITUS
     Route: 048
     Dates: start: 20160606
  19. LANTUS [Concomitant]
     Active Substance: INSULIN GLARGINE
     Indication: TYPE 2 DIABETES MELLITUS
     Route: 051
     Dates: start: 20160829, end: 20161030
  20. WARFARIN [Concomitant]
     Active Substance: WARFARIN
     Dosage: STARTED BEFORE ADMINISTRATION OF CANAGLFLOZIN
     Route: 048
     Dates: end: 20170920
  21. CRESTOR [Concomitant]
     Active Substance: ROSUVASTATIN CALCIUM
     Dosage: STARTED BEFORE ADMINISTRATION OF CANAGLFLOZIN
     Route: 048
  22. PREMINENT [Concomitant]
     Active Substance: HYDROCHLOROTHIAZIDE\LOSARTAN POTASSIUM
     Dosage: STARTED BEFORE ADMINISTRATION OF CANAGLFLOZIN
     Route: 048

REACTIONS (1)
  - Lumbar spinal stenosis [Not Recovered/Not Resolved]

NARRATIVE: CASE EVENT DATE: 20161028
